FAERS Safety Report 9200998 (Version 4)
Quarter: 2013Q3

REPORT INFORMATION
  Report Type: Spontaneous
  Country: FI (occurrence: FI)
  Receive Date: 20130401
  Receipt Date: 20130708
  Transmission Date: 20140515
  Serious: Yes (Hospitalization, Other)
  Sender: FDA-Public Use
  Company Number: FI-AMGEN-FINSP2013009488

PATIENT
  Age: 30 Year
  Sex: Female

DRUGS (13)
  1. ENBREL [Suspect]
     Indication: ANKYLOSING SPONDYLITIS
     Dosage: 25 MG, 2X/WEEK
     Route: 065
     Dates: start: 20120713, end: 2013
  2. ENBREL [Suspect]
     Dosage: 25 MG, 2X/WEEK
     Route: 065
     Dates: start: 20130212, end: 20130212
  3. CORTISONE [Suspect]
     Dosage: UNK
  4. LYRICA [Concomitant]
     Dosage: 75 MG, 2X/DAY
  5. VENLAFAXINE [Concomitant]
     Dosage: 150 MG + 75 MG
  6. PANACOD [Concomitant]
     Dosage: 1-2 TABLETS 1-4 TIMES A DAY
  7. DIAPAM                             /00017001/ [Concomitant]
     Indication: MUSCLE RELAXANT THERAPY
     Dosage: 5 MG, 1-4 TIMES A DAY
  8. TOLVON [Concomitant]
     Indication: SLEEP DISORDER
     Dosage: 30 MG, UNK
  9. KLOTRIPTYL                         /00033501/ [Concomitant]
     Dosage: UNK
  10. NEXIUM                             /01479302/ [Concomitant]
     Dosage: 20 MG, 1-4 TABLETS A DAY
  11. NORSPAN                            /00444001/ [Concomitant]
     Dosage: 5 MG, OCCASSIONALLY AT SPECIAL SITUATIONS
  12. SYMBICORT [Concomitant]
     Dosage: UNK
  13. SYMBICORT [Concomitant]

REACTIONS (8)
  - General physical condition abnormal [Recovered/Resolved]
  - Palpitations [Recovered/Resolved]
  - Hypertension [Recovered/Resolved]
  - Oesophageal irritation [Recovering/Resolving]
  - Rheumatic disorder [Unknown]
  - Anaemia [Recovered/Resolved]
  - Oedema peripheral [Recovered/Resolved]
  - Injection site bruising [Recovered/Resolved]
